FAERS Safety Report 15249169 (Version 1)
Quarter: 2018Q3

REPORT INFORMATION
  Report Type: Spontaneous
  Country: US (occurrence: US)
  Receive Date: 20180807
  Receipt Date: 20180807
  Transmission Date: 20181010
  Serious: No
  Sender: FDA-Public Use
  Company Number: US-MYLANLABS-2018M1054885

PATIENT
  Age: 78 Year
  Sex: Female

DRUGS (2)
  1. FENTANYL TRANSDERMAL SYSTEM [Suspect]
     Active Substance: FENTANYL
     Indication: ARTHRALGIA
     Dosage: 50 UNK, UNK
     Route: 062
  2. DILAUDID HP [Concomitant]
     Active Substance: HYDROMORPHONE HYDROCHLORIDE
     Indication: PRODUCT USED FOR UNKNOWN INDICATION
     Dosage: 8MG SIX TIMES DAILY

REACTIONS (4)
  - Product adhesion issue [Recovered/Resolved]
  - Application site hypersensitivity [Not Recovered/Not Resolved]
  - Wrong technique in product usage process [Recovered/Resolved]
  - Application site ulcer [Not Recovered/Not Resolved]
